FAERS Safety Report 6712136-0 (Version None)
Quarter: 2010Q2

REPORT INFORMATION
  Report Type: 
  Country: None (occurrence: None)
  Receive Date: 20100505
  Receipt Date: 20100422
  Transmission Date: 20101027
  Serious: Yes (Hospitalization, Other)
  Sender: FDA-Public Use
  Company Number: US-ELI_LILLY_AND_COMPANY-US201004006926

PATIENT
  Sex: Female

DRUGS (3)
  1. FORTEO [Suspect]
     Indication: OSTEOPOROSIS
     Dosage: 20 UG, DAILY (1/D)
  2. LISINOPRIL [Concomitant]
     Dosage: 20-25 MG, DAILY (1/D)
  3. PROTONIX /01263201/ [Concomitant]
     Dosage: 40 MG, DAILY (1/D)

REACTIONS (1)
  - HIP ARTHROPLASTY [None]
